FAERS Safety Report 10091471 (Version 1)
Quarter: 2014Q2

REPORT INFORMATION
  Report Type: Spontaneous
  Country: US (occurrence: US)
  Receive Date: 20140421
  Receipt Date: 20140421
  Transmission Date: 20141212
  Serious: No
  Sender: FDA-Public Use
  Company Number: US-B.I. PHARMACEUTICALS,INC./RIDGEFIELD-2014-BI-16513BP

PATIENT
  Age: 92 Year
  Sex: Female

DRUGS (10)
  1. TRADJENTA [Suspect]
     Indication: DIABETES MELLITUS
     Dosage: 5 MG
     Route: 048
     Dates: start: 20140406
  2. GLIPIZIDE [Concomitant]
     Dosage: 10 MG
     Route: 048
  3. MELATONIN [Concomitant]
     Route: 048
  4. SYNTHROID [Concomitant]
     Dosage: 75 MCG
     Route: 048
  5. OMEPRAZOLE [Concomitant]
     Indication: DYSPEPSIA
     Dosage: 20 MG
     Route: 048
  6. AMLODIPINE [Concomitant]
     Dosage: 5 MG
     Route: 048
  7. ASPIRIN [Concomitant]
     Dosage: 81 MG
     Route: 048
  8. LOPRESSOR [Concomitant]
     Dosage: 100 MG
     Route: 048
  9. XALATAN [Concomitant]
     Indication: GLAUCOMA
     Route: 050
  10. ZOCOR [Concomitant]
     Dosage: 10 MG
     Route: 048

REACTIONS (1)
  - Drug ineffective [Not Recovered/Not Resolved]
